FAERS Safety Report 7573321-1 (Version None)
Quarter: 2011Q2

REPORT INFORMATION
  Report Type: 
  Country: None (occurrence: None)
  Receive Date: 20110627
  Receipt Date: 20110616
  Transmission Date: 20111010
  Serious: Yes (Other)
  Sender: FDA-Public Use
  Company Number: PHHY2011CR53585

PATIENT
  Sex: Female

DRUGS (1)
  1. ZOLEDRONIC ACID [Suspect]
     Dosage: 5 MG,
     Route: 042

REACTIONS (3)
  - HERPES ZOSTER [None]
  - ARTHRALGIA [None]
  - PYREXIA [None]
